FAERS Safety Report 14914696 (Version 3)
Quarter: 2018Q2

REPORT INFORMATION
  Report Type: Report from Study
  Country: US (occurrence: US)
  Receive Date: 20180518
  Receipt Date: 20180529
  Transmission Date: 20180711
  Serious: Yes (Other)
  Sender: FDA-Public Use
  Company Number: US-JAZZ-2018-US-006434

PATIENT
  Age: 33 Year
  Sex: Male

DRUGS (35)
  1. XYREM [Suspect]
     Active Substance: SODIUM OXYBATE
     Indication: NARCOLEPSY
     Dosage: 2.25 G, BID
     Route: 048
     Dates: start: 201804, end: 201804
  2. CHOLINE BITARTRATE [Concomitant]
     Active Substance: CHOLINE BITARTRATE
  3. FLUTICASONE PROPIONATE. [Concomitant]
     Active Substance: FLUTICASONE PROPIONATE
  4. MENATETRENONE [Concomitant]
     Active Substance: MENATETRENONE
  5. XYREM [Suspect]
     Active Substance: SODIUM OXYBATE
     Dosage: 3.75 G, BID
     Route: 048
     Dates: start: 20180417, end: 201804
  6. BENTONITE [Concomitant]
     Active Substance: BENTONITE
  7. FIBER [Concomitant]
     Active Substance: PSYLLIUM HUSK
  8. MAGNESIUM OXIDE. [Concomitant]
     Active Substance: MAGNESIUM OXIDE
  9. TAURINE [Concomitant]
     Active Substance: TAURINE
  10. ASCORBIC ACID. [Concomitant]
     Active Substance: ASCORBIC ACID
  11. XYREM [Suspect]
     Active Substance: SODIUM OXYBATE
     Dosage: 3 G, BID
     Route: 048
     Dates: start: 201804, end: 201804
  12. BEE POLLEN [Concomitant]
     Active Substance: BEE POLLEN
  13. BRAHMI [Concomitant]
  14. VITIS VINIFERA SEED [Concomitant]
  15. MARIJUANA [Concomitant]
     Active Substance: CANNABIS SATIVA SUBSP. INDICA TOP
  16. POTASSIUM CHLORIDE. [Concomitant]
     Active Substance: POTASSIUM CHLORIDE
  17. RHODIOLA ROSEA [Concomitant]
     Active Substance: HERBALS
  18. VITAMIN D3 [Concomitant]
     Active Substance: CHOLECALCIFEROL
  19. XYREM [Suspect]
     Active Substance: SODIUM OXYBATE
     Dosage: 3 G, BID
     Route: 048
     Dates: start: 201804, end: 2018
  20. CAMELLIA SINENSIS [Concomitant]
     Active Substance: GREEN TEA LEAF
  21. INOSITOL [Concomitant]
     Active Substance: INOSITOL
  22. INULIN [Concomitant]
     Active Substance: INULIN
  23. PANTOTHENIC ACID [Concomitant]
     Active Substance: PANTOTHENIC ACID
  24. TYLENOL EXTRA STRENGTH [Concomitant]
     Active Substance: ACETAMINOPHEN
  25. VITAMIN B COMPLEX [Concomitant]
     Active Substance: CYANOCOBALAMIN\DEXPANTHENOL\NIACINAMIDE\PYRIDOXINE HYDROCHLORIDE\RIBOFLAVIN 5^-PHOSPHATE SODIUM\THIAMINE HYDROCHLORIDE\VITAMIN B COMPLEX
  26. ZINC CHELATE [Concomitant]
  27. ACEROLA [Concomitant]
     Active Substance: ACEROLA
  28. CREATINE [Concomitant]
     Active Substance: CREATINE
  29. CENTELLA ASIATICA [Concomitant]
     Active Substance: CENTELLA ASIATICA
  30. BORON CITRATE [Concomitant]
  31. CHLORELLA VULGARIS [Concomitant]
     Active Substance: CHLORELLA VULGARIS
  32. IBUPROFEN. [Concomitant]
     Active Substance: IBUPROFEN
  33. ZINC. [Concomitant]
     Active Substance: ZINC
  34. GLYCINE. [Concomitant]
     Active Substance: GLYCINE
  35. METHYLCOBALAMIN. [Concomitant]
     Active Substance: METHYLCOBALAMIN

REACTIONS (9)
  - Fear [Not Recovered/Not Resolved]
  - Depression [Not Recovered/Not Resolved]
  - Insomnia [Not Recovered/Not Resolved]
  - Feeling abnormal [Not Recovered/Not Resolved]
  - Memory impairment [Not Recovered/Not Resolved]
  - Drug ineffective [Unknown]
  - Sluggishness [Not Recovered/Not Resolved]
  - Disturbance in attention [Unknown]
  - Confusional state [Unknown]

NARRATIVE: CASE EVENT DATE: 201804
